FAERS Safety Report 26114346 (Version 2)
Quarter: 2025Q4

REPORT INFORMATION
  Report Type: Spontaneous
  Country: US (occurrence: US)
  Receive Date: 20251202
  Receipt Date: 20251212
  Transmission Date: 20260118
  Serious: Yes (Hospitalization, Other)
  Sender: BLUEPRINT MEDICINES
  Company Number: US-Blueprint Medicines Corporation-2025-AER-02584

PATIENT
  Age: 55 Year
  Sex: Male

DRUGS (2)
  1. AYVAKIT [Suspect]
     Active Substance: AVAPRITINIB
     Indication: Neoplasm malignant
     Route: 065
     Dates: start: 20230728
  2. IRON [Concomitant]
     Active Substance: IRON
     Indication: Product used for unknown indication
     Route: 065

REACTIONS (6)
  - Surgery [Unknown]
  - Hiatus hernia [Recovered/Resolved]
  - Brain fog [Unknown]
  - Hair colour changes [Unknown]
  - Mouth ulceration [Unknown]
  - Swollen tongue [Unknown]

NARRATIVE: CASE EVENT DATE: 20251001
